FAERS Safety Report 8580442-3 (Version None)
Quarter: 2012Q3

REPORT INFORMATION
  Report Type: 
  Country: None (occurrence: None)
  Receive Date: 20120808
  Receipt Date: 20120726
  Transmission Date: 20120928
  Serious: No
  Sender: FDA-Public Use
  Company Number: US-ASTRAZENECA-2012SE52980

PATIENT
  Sex: Male

DRUGS (2)
  1. NEXIUM [Suspect]
     Route: 048
  2. NEXIUM [Suspect]
     Route: 048

REACTIONS (6)
  - IMPAIRED WORK ABILITY [None]
  - HIATUS HERNIA [None]
  - INTERVERTEBRAL DISC PROTRUSION [None]
  - ASTHENIA [None]
  - DRUG DOSE OMISSION [None]
  - VOMITING [None]
